FAERS Safety Report 8759468 (Version 1)
Quarter: 2012Q4

REPORT INFORMATION
  Report Type: 
  Country: JP (occurrence: JP)
  Receive Date: 20120829
  Receipt Date: 20120829
  Transmission Date: 20130627
  Serious: Yes (Hospitalization, Other)
  Sender: FDA-Public Use
  Company Number: JP-MSD-1206USA05343

PATIENT

DRUGS (1)
  1. FOSAMAC TABLETS 35MG [Suspect]
     Dosage: 35 mg, QW
     Route: 048

REACTIONS (1)
  - Femoral neck fracture [Unknown]
